FAERS Safety Report 10720675 (Version 3)
Quarter: 2015Q1

REPORT INFORMATION
  Report Type: Spontaneous
  Country: HR (occurrence: HR)
  Receive Date: 20150119
  Receipt Date: 20150227
  Transmission Date: 20150721
  Serious: Yes (Hospitalization)
  Sender: FDA-Public Use
  Company Number: HR-NOVOPROD-435065

PATIENT
  Age: 12 Year
  Sex: Male
  Weight: 36 kg

DRUGS (4)
  1. LEVEMIR [Suspect]
     Active Substance: INSULIN DETEMIR
     Indication: TYPE 1 DIABETES MELLITUS
     Dosage: UNKNOWN (IN THE EVENING)
     Route: 065
  2. NOVORAPID [Suspect]
     Active Substance: INSULIN ASPART
     Indication: TYPE 1 DIABETES MELLITUS
     Dosage: BEFORE EVERY MEAL
     Route: 065
  3. LEVEMIR [Suspect]
     Active Substance: INSULIN DETEMIR
     Dosage: 16 U, QD (8 UNITS IN THE MORNING AND 8 UNITS)
     Route: 065
  4. NOVORAPID [Suspect]
     Active Substance: INSULIN ASPART
     Dosage: 18 U, QD (7 UNITS BEFORE BREAKFAST, 5 UNITS BEFORE LUNCH AND 6 UNITS BEFORE DINNER)
     Route: 065

REACTIONS (2)
  - Diabetic ketoacidosis [Recovered/Resolved]
  - Device malfunction [Unknown]

NARRATIVE: CASE EVENT DATE: 20140811
